FAERS Safety Report 17600471 (Version 1)
Quarter: 2020Q1

REPORT INFORMATION
  Report Type: Spontaneous
  Country: FR (occurrence: FR)
  Receive Date: 20200330
  Receipt Date: 20200330
  Transmission Date: 20200409
  Serious: Yes (Other)
  Sender: FDA-Public Use
  Company Number: FR-SA-2020SA071946

PATIENT
  Age: 66 Year
  Sex: Female

DRUGS (3)
  1. DOXYLAMINE SUCCINATE. [Suspect]
     Active Substance: DOXYLAMINE SUCCINATE
     Dosage: 7.5 MG, QD
     Route: 048
     Dates: start: 2016
  2. THERALENE [Suspect]
     Active Substance: TRIMEPRAZINE
     Dosage: 10 MG, QD (OCCASIONAL)
     Route: 048
  3. GUAIFENESIN/OXOMEMAZINE/PARACETAMOL/SODIUM BENZOATE [Suspect]
     Active Substance: ACETAMINOPHEN\GUAIFENESIN\OXOMEMAZINE\SODIUM BENZOATE
     Dosage: 10 ML, QD (OCCASIONAL)
     Route: 048

REACTIONS (1)
  - Drug dependence [Unknown]

NARRATIVE: CASE EVENT DATE: 2016
